FAERS Safety Report 7349255-4 (Version None)
Quarter: 2011Q1

REPORT INFORMATION
  Report Type: 
  Country: None (occurrence: None)
  Receive Date: 20110304
  Receipt Date: 20110221
  Transmission Date: 20110831
  Serious: Yes (Hospitalization)
  Sender: FDA-Public Use
  Company Number: 028232

PATIENT
  Sex: Male

DRUGS (2)
  1. KEPPRA [Suspect]
     Indication: CONVULSION
     Dosage: 20 MG/KG/DOSE; INTRAVENOUS
     Route: 042
     Dates: start: 20110201, end: 20110201
  2. KEPPRA [Suspect]
     Indication: CONVULSION
     Dosage: (NOT OTHERWISE SPECIFIED), ORAL
     Route: 048
     Dates: start: 20110201, end: 20110220

REACTIONS (4)
  - SLEEP DISORDER [None]
  - MANIA [None]
  - CONDITION AGGRAVATED [None]
  - AGITATION [None]
